FAERS Safety Report 25935097 (Version 1)
Quarter: 2025Q4

REPORT INFORMATION
  Report Type: Spontaneous
  Country: US (occurrence: US)
  Receive Date: 20251017
  Receipt Date: 20251017
  Transmission Date: 20260117
  Serious: No
  Sender: TRIS PHARMA, INC.
  Company Number: US-TRIS PHARMA, INC.-25US012116

PATIENT

DRUGS (3)
  1. ONYDA XR [Suspect]
     Active Substance: CLONIDINE HYDROCHLORIDE
     Indication: Attention deficit hyperactivity disorder
     Dosage: 0.5 MILLILITRE, QD (AT NIGHT)
     Route: 048
     Dates: start: 20251002
  2. CLONIDINE [Concomitant]
     Active Substance: CLONIDINE
     Indication: Fatigue
     Dosage: 0.5 DOSAGE FORM, QD (AT BEDTIME)
     Route: 048
     Dates: start: 202506, end: 2025
  3. CLONIDINE [Concomitant]
     Active Substance: CLONIDINE
     Indication: Insomnia

REACTIONS (6)
  - Off label use [Unknown]
  - Psychomotor hyperactivity [Not Recovered/Not Resolved]
  - Anxiety [Unknown]
  - Urinary tract infection [Recovering/Resolving]
  - Insomnia [Unknown]
  - Drug ineffective [Unknown]

NARRATIVE: CASE EVENT DATE: 20251002
